FAERS Safety Report 24248433 (Version 8)
Quarter: 2025Q4

REPORT INFORMATION
  Report Type: Report from Study
  Country: CN (occurrence: CN)
  Receive Date: 20240826
  Receipt Date: 20251124
  Transmission Date: 20260118
  Serious: Yes (Other)
  Sender: ROCHE
  Company Number: CN-ROCHE-10000013246

PATIENT
  Age: 40 Year
  Sex: Male
  Weight: 69 kg

DRUGS (95)
  1. POLATUZUMAB VEDOTIN [Suspect]
     Active Substance: POLATUZUMAB VEDOTIN
     Indication: Diffuse large B-cell lymphoma
     Dosage: START 24-JUL-2024
     Route: 042
     Dates: end: 20240724
  2. POLATUZUMAB VEDOTIN [Suspect]
     Active Substance: POLATUZUMAB VEDOTIN
     Dosage: START DATE 14-AUG-2024
     Route: 042
     Dates: start: 20240814, end: 20240814
  3. POLATUZUMAB VEDOTIN [Suspect]
     Active Substance: POLATUZUMAB VEDOTIN
     Dosage: START DATE 14-AUG-2024
     Route: 042
     Dates: start: 20240702, end: 20240702
  4. POLATUZUMAB VEDOTIN [Suspect]
     Active Substance: POLATUZUMAB VEDOTIN
     Dosage: START 24-JUL-2024
     Route: 042
     Dates: end: 20240612
  5. RITUXIMAB [Suspect]
     Active Substance: RITUXIMAB
     Indication: Diffuse large B-cell lymphoma
     Dosage: START DATE:11-JUN-2024
     Route: 042
     Dates: start: 20240611, end: 20240611
  6. RITUXIMAB [Suspect]
     Active Substance: RITUXIMAB
     Dosage: START 23-JUL-2024
     Route: 042
     Dates: end: 20240723
  7. RITUXIMAB [Suspect]
     Active Substance: RITUXIMAB
     Dosage: START 23-JUL-2024
     Route: 042
     Dates: start: 20240701, end: 20240701
  8. RITUXIMAB [Suspect]
     Active Substance: RITUXIMAB
     Dosage: START DATE:11-JUN-2024
     Route: 042
     Dates: start: 20240611, end: 20240611
  9. RITUXIMAB [Suspect]
     Active Substance: RITUXIMAB
     Dosage: START 23-JUL-2024
     Route: 042
     Dates: start: 20240701, end: 20240701
  10. RITUXIMAB [Suspect]
     Active Substance: RITUXIMAB
     Route: 042
     Dates: start: 20240814, end: 20240814
  11. RITUXIMAB [Suspect]
     Active Substance: RITUXIMAB
     Route: 042
     Dates: start: 20241021, end: 20241021
  12. RITUXIMAB [Suspect]
     Active Substance: RITUXIMAB
     Route: 042
     Dates: start: 20241115, end: 20241115
  13. RITUXIMAB [Suspect]
     Active Substance: RITUXIMAB
     Indication: Diffuse large B-cell lymphoma
     Route: 058
     Dates: start: 20240611, end: 20240611
  14. EPIRUBICIN HYDROCHLORIDE [Suspect]
     Active Substance: EPIRUBICIN HYDROCHLORIDE
     Indication: Diffuse large B-cell lymphoma
     Route: 065
  15. EPIRUBICIN HYDROCHLORIDE [Suspect]
     Active Substance: EPIRUBICIN HYDROCHLORIDE
     Route: 042
     Dates: end: 20240814
  16. CYCLOPHOSPHAMIDE [Suspect]
     Active Substance: CYCLOPHOSPHAMIDE
     Indication: Diffuse large B-cell lymphoma
     Dosage: START 09-JUN-2024
     Route: 042
     Dates: start: 20240609, end: 20240609
  17. CYCLOPHOSPHAMIDE [Suspect]
     Active Substance: CYCLOPHOSPHAMIDE
     Dosage: START DATE OF MOST RECENT DOSE OF STUDY DRUG 24-JUL-2024
     Route: 042
     Dates: start: 20240702, end: 20240702
  18. CYCLOPHOSPHAMIDE [Suspect]
     Active Substance: CYCLOPHOSPHAMIDE
     Dosage: START DATE OF MOST RECENT DOSE OF STUDY DRUG 24-JUL-2024
     Route: 042
     Dates: start: 20240814, end: 20240814
  19. PREDNISONE [Suspect]
     Active Substance: PREDNISONE
     Indication: Diffuse large B-cell lymphoma
     Dosage: START 24-JUL-2024
     Route: 048
     Dates: end: 20240728
  20. PREDNISONE [Suspect]
     Active Substance: PREDNISONE
     Dosage: START 24-JUL-2024
     Route: 048
     Dates: start: 20240702, end: 20240706
  21. PREDNISONE [Suspect]
     Active Substance: PREDNISONE
     Dosage: START 24-JUL-2024
     Route: 048
     Dates: start: 20240609, end: 20240613
  22. PREDNISONE [Suspect]
     Active Substance: PREDNISONE
     Dosage: START 24-JUL-2024
     Route: 048
     Dates: start: 20240814, end: 20240814
  23. DOXORUBICIN [Suspect]
     Active Substance: DOXORUBICIN
     Indication: Diffuse large B-cell lymphoma
     Dosage: START DATE 24-JUL-2024
     Route: 042
     Dates: end: 20240724
  24. DOXORUBICIN [Suspect]
     Active Substance: DOXORUBICIN
     Dosage: START DATE 24-JUL-2024
     Route: 042
     Dates: end: 20240702
  25. DOXORUBICIN [Suspect]
     Active Substance: DOXORUBICIN
     Dosage: START DATE 24-JUL-2024
     Route: 042
     Dates: start: 20240610, end: 20240610
  26. MOXIFLOXACIN HYDROCHLORIDE [Concomitant]
     Active Substance: MOXIFLOXACIN HYDROCHLORIDE
     Route: 042
     Dates: start: 20240614, end: 20240617
  27. Diisopropylamine Dichloroacetate and Sodium Gluconate [Concomitant]
     Route: 042
     Dates: start: 20240609, end: 20240609
  28. Diisopropylamine Dichloroacetate and Sodium Gluconate [Concomitant]
     Route: 042
     Dates: start: 20240724, end: 20240724
  29. Diisopropylamine Dichloroacetate and Sodium Gluconate [Concomitant]
     Route: 042
     Dates: start: 20240610, end: 20240613
  30. INSULIN HUMAN [Concomitant]
     Active Substance: INSULIN HUMAN
     Route: 042
     Dates: start: 20240609, end: 20240609
  31. INSULIN HUMAN [Concomitant]
     Active Substance: INSULIN HUMAN
     Route: 042
     Dates: start: 20240701, end: 20240701
  32. INSULIN HUMAN [Concomitant]
     Active Substance: INSULIN HUMAN
     Route: 042
     Dates: start: 20240723, end: 20240724
  33. SODIUM BICARBONATE [Concomitant]
     Active Substance: SODIUM BICARBONATE
     Route: 042
     Dates: start: 20240609, end: 20240613
  34. SODIUM BICARBONATE [Concomitant]
     Active Substance: SODIUM BICARBONATE
     Route: 042
     Dates: start: 20240701, end: 20240701
  35. SODIUM BICARBONATE [Concomitant]
     Active Substance: SODIUM BICARBONATE
     Route: 042
     Dates: start: 20240723, end: 20240724
  36. MESNA [Concomitant]
     Active Substance: MESNA
     Route: 042
     Dates: start: 20240609, end: 20240609
  37. MESNA [Concomitant]
     Active Substance: MESNA
     Route: 042
     Dates: start: 20240724, end: 20240724
  38. Tenofovir alafenamide Fumarate tablets [Concomitant]
     Route: 048
     Dates: start: 20240702, end: 20240704
  39. Tenofovir alafenamide Fumarate tablets [Concomitant]
     Route: 048
     Dates: start: 20240723, end: 20240725
  40. Tenofovir alafenamide Fumarate tablets [Concomitant]
     Route: 048
     Dates: start: 20240608, end: 20240614
  41. Entecavir tablets [Concomitant]
     Route: 048
     Dates: start: 20240702, end: 20240702
  42. Entecavir tablets [Concomitant]
     Route: 048
     Dates: start: 20240723, end: 20240725
  43. Entecavir tablets [Concomitant]
     Route: 048
     Dates: start: 20240607, end: 20240608
  44. Diphenhydramine Hydrochloride Tablets [Concomitant]
     Route: 048
     Dates: start: 20240701, end: 20240702
  45. Diphenhydramine Hydrochloride Tablets [Concomitant]
     Route: 048
     Dates: start: 20240723, end: 20240724
  46. Diphenhydramine Hydrochloride Tablets [Concomitant]
     Route: 048
     Dates: start: 20240611, end: 20240612
  47. Tropisetron Hydrochloride For Injection [Concomitant]
     Route: 042
     Dates: start: 20240702, end: 20240702
  48. Tropisetron Hydrochloride For Injection [Concomitant]
     Route: 042
     Dates: start: 20240724, end: 20240724
  49. Tropisetron Hydrochloride For Injection [Concomitant]
     Route: 042
     Dates: start: 20240609, end: 20240610
  50. PROMETHAZINE [Concomitant]
     Active Substance: PROMETHAZINE HYDROCHLORIDE
     Route: 030
     Dates: start: 20240723, end: 20240724
  51. PROMETHAZINE [Concomitant]
     Active Substance: PROMETHAZINE HYDROCHLORIDE
     Route: 030
     Dates: start: 20240611, end: 20240611
  52. DEXRAZOXANE [Concomitant]
     Active Substance: DEXRAZOXANE
     Route: 042
     Dates: start: 20240702, end: 20240702
  53. DEXRAZOXANE [Concomitant]
     Active Substance: DEXRAZOXANE
     Route: 042
     Dates: start: 20240724, end: 20240724
  54. DEXRAZOXANE [Concomitant]
     Active Substance: DEXRAZOXANE
     Route: 042
     Dates: start: 20240610, end: 20240610
  55. LIDOCAINE HYDROCHLORIDE [Concomitant]
     Active Substance: LIDOCAINE HYDROCHLORIDE
     Indication: Anaesthesia
     Route: 058
     Dates: start: 20240701, end: 20240701
  56. LIDOCAINE HYDROCHLORIDE [Concomitant]
     Active Substance: LIDOCAINE HYDROCHLORIDE
     Route: 058
     Dates: start: 20240722, end: 20240722
  57. LIDOCAINE HYDROCHLORIDE [Concomitant]
     Active Substance: LIDOCAINE HYDROCHLORIDE
     Route: 058
     Dates: start: 20240610, end: 20240610
  58. METHOTREXATE [Concomitant]
     Active Substance: METHOTREXATE
     Route: 042
     Dates: start: 20240701, end: 20240701
  59. METHOTREXATE [Concomitant]
     Active Substance: METHOTREXATE
     Route: 042
     Dates: start: 20240722, end: 20240722
  60. METHOTREXATE [Concomitant]
     Active Substance: METHOTREXATE
     Route: 042
     Dates: start: 20240607, end: 20240607
  61. DEXAMETHASONE SODIUM PHOSPHATE [Concomitant]
     Active Substance: DEXAMETHASONE SODIUM PHOSPHATE
     Route: 042
     Dates: start: 20240701, end: 20240701
  62. DEXAMETHASONE SODIUM PHOSPHATE [Concomitant]
     Active Substance: DEXAMETHASONE SODIUM PHOSPHATE
     Route: 042
     Dates: start: 20240723, end: 20240723
  63. DEXAMETHASONE SODIUM PHOSPHATE [Concomitant]
     Active Substance: DEXAMETHASONE SODIUM PHOSPHATE
     Route: 042
     Dates: start: 20240611, end: 20240611
  64. DEXAMETHASONE SODIUM PHOSPHATE [Concomitant]
     Active Substance: DEXAMETHASONE SODIUM PHOSPHATE
     Route: 042
     Dates: start: 20240615, end: 20240615
  65. Human Granulocyte Colony-stimulating Factor Injection [Concomitant]
     Route: 058
     Dates: start: 20240723, end: 20240723
  66. Human Granulocyte Colony-stimulating Factor Injection [Concomitant]
     Route: 058
     Dates: start: 20240618, end: 20240620
  67. Human Granulocyte Colony-stimulating Factor Injection [Concomitant]
     Route: 058
     Dates: start: 20240617, end: 20240618
  68. Human Granulocyte Colony-stimulating Factor Injection [Concomitant]
     Route: 058
     Dates: start: 20240616, end: 20240616
  69. CEFOPERAZONE SODIUM\SULBACTAM SODIUM [Concomitant]
     Active Substance: CEFOPERAZONE SODIUM\SULBACTAM SODIUM
     Route: 042
     Dates: start: 20240609, end: 20240614
  70. CEFOPERAZONE SODIUM\SULBACTAM SODIUM [Concomitant]
     Active Substance: CEFOPERAZONE SODIUM\SULBACTAM SODIUM
     Route: 058
     Dates: start: 20240608, end: 20240608
  71. CEFOPERAZONE SODIUM\SULBACTAM SODIUM [Concomitant]
     Active Substance: CEFOPERAZONE SODIUM\SULBACTAM SODIUM
     Route: 042
     Dates: start: 20240608, end: 20240608
  72. FAMCICLOVIR [Concomitant]
     Active Substance: FAMCICLOVIR
     Route: 048
     Dates: start: 20240614, end: 20240614
  73. FAMCICLOVIR [Concomitant]
     Active Substance: FAMCICLOVIR
     Route: 048
     Dates: start: 20240616, end: 20240621
  74. FAMCICLOVIR [Concomitant]
     Active Substance: FAMCICLOVIR
     Route: 048
     Dates: start: 20240615, end: 20240615
  75. CYSTEINE\GLYCINE\GLYCYRRHIZIN [Concomitant]
     Active Substance: CYSTEINE\GLYCINE\GLYCYRRHIZIN
     Route: 042
     Dates: start: 20240615, end: 20240617
  76. Glutathione for Injection [Concomitant]
     Route: 042
     Dates: start: 20240615, end: 20240621
  77. ESOMEPRAZOLE SODIUM [Concomitant]
     Active Substance: ESOMEPRAZOLE SODIUM
     Route: 042
     Dates: start: 20240615, end: 20240621
  78. PIPERACILLIN SODIUM\TAZOBACTAM SODIUM [Concomitant]
     Active Substance: PIPERACILLIN SODIUM\TAZOBACTAM SODIUM
     Route: 042
     Dates: start: 20240617, end: 20240617
  79. PIPERACILLIN SODIUM\TAZOBACTAM SODIUM [Concomitant]
     Active Substance: PIPERACILLIN SODIUM\TAZOBACTAM SODIUM
     Route: 042
     Dates: start: 20240618, end: 20240621
  80. Micafungin Sqdium for Injection [Concomitant]
     Route: 042
     Dates: start: 20240618, end: 20240621
  81. ASCORBIC ACID [Concomitant]
     Active Substance: ASCORBIC ACID
     Route: 042
     Dates: start: 20240609, end: 20240609
  82. CALCIUM GLUCONATE [Concomitant]
     Active Substance: CALCIUM GLUCONATE
     Route: 042
     Dates: start: 20240609, end: 20240609
  83. LORATADINE [Concomitant]
     Active Substance: LORATADINE
     Route: 048
     Dates: start: 20240609, end: 20240609
  84. METHYLPREDNISOLONE SODIUM SUCCINATE [Concomitant]
     Active Substance: METHYLPREDNISOLONE SODIUM SUCCINATE
     Route: 042
     Dates: start: 20240611, end: 20240611
  85. DEXTROSE\SODIUM CHLORIDE [Concomitant]
     Active Substance: DEXTROSE\SODIUM CHLORIDE
     Route: 042
     Dates: start: 20240614, end: 20240614
  86. PROPACETAMOL HYDROCHLORIDE [Concomitant]
     Active Substance: PROPACETAMOL HYDROCHLORIDE
     Route: 042
     Dates: start: 20240614, end: 20240614
  87. TORSEMIDE [Concomitant]
     Active Substance: TORSEMIDE
     Route: 042
     Dates: start: 20240615, end: 20240615
  88. ESZOPICLONE [Concomitant]
     Active Substance: ESZOPICLONE
     Route: 048
     Dates: start: 20240618, end: 20240618
  89. ESZOPICLONE [Concomitant]
     Active Substance: ESZOPICLONE
     Route: 048
     Dates: start: 20240620, end: 20240620
  90. ESZOPICLONE [Concomitant]
     Active Substance: ESZOPICLONE
     Route: 048
     Dates: start: 20240616, end: 20240616
  91. ALBUMIN HUMAN [Concomitant]
     Active Substance: ALBUMIN HUMAN
     Route: 042
     Dates: start: 20240613, end: 20240613
  92. Dang fei li gan ning capsule [Concomitant]
     Route: 048
     Dates: start: 20240617, end: 20240621
  93. POVIDONE-IODINE [Concomitant]
     Active Substance: POVIDONE-IODINE
  94. POTASSIUM CHLORIDE [Concomitant]
     Active Substance: POTASSIUM CHLORIDE
  95. SODIUM CHLORIDE [Concomitant]
     Active Substance: SODIUM CHLORIDE

REACTIONS (18)
  - White blood cell count decreased [Recovered/Resolved]
  - Anaemia [Recovered/Resolved]
  - Platelet count decreased [Recovered/Resolved]
  - Alanine aminotransferase increased [Recovered/Resolved]
  - Hypocalcaemia [Recovered/Resolved]
  - Erythema [Recovered/Resolved]
  - Hypoalbuminaemia [Recovered/Resolved]
  - Neutrophil count decreased [Recovered/Resolved]
  - Pyrexia [Recovered/Resolved]
  - Aspartate aminotransferase increased [Recovered/Resolved]
  - Gamma-glutamyltransferase increased [Recovered/Resolved]
  - Bile acids increased [Recovered/Resolved]
  - Hyperglycaemia [Recovered/Resolved]
  - Hypokalaemia [Recovered/Resolved]
  - Folliculitis [Recovered/Resolved]
  - Skin disorder [Recovered/Resolved]
  - Lymphocyte count decreased [Recovered/Resolved]
  - Hyponatraemia [Recovered/Resolved]

NARRATIVE: CASE EVENT DATE: 20240611
